FAERS Safety Report 18363580 (Version 4)
Quarter: 2022Q1

REPORT INFORMATION
  Report Type: Spontaneous
  Country: JP (occurrence: JP)
  Receive Date: 20201009
  Receipt Date: 20220324
  Transmission Date: 20220424
  Serious: Yes (Other)
  Sender: FDA-Public Use
  Company Number: JP-BRISTOL-MYERS SQUIBB COMPANY-BMS-2020-082983

PATIENT
  Age: 67 Year
  Sex: Male

DRUGS (4)
  1. OPDIVO [Suspect]
     Active Substance: NIVOLUMAB
     Indication: Malignant neoplasm of unknown primary site
     Dosage: UNK
     Route: 041
     Dates: start: 20200916
  2. OPDIVO [Suspect]
     Active Substance: NIVOLUMAB
     Dosage: UNKNOWN
     Route: 041
     Dates: start: 20201007
  3. YERVOY [Suspect]
     Active Substance: IPILIMUMAB
     Indication: Malignant neoplasm of unknown primary site
     Dosage: UNK
     Route: 041
     Dates: start: 20200916
  4. YERVOY [Suspect]
     Active Substance: IPILIMUMAB
     Dosage: UNKNOWN
     Route: 041
     Dates: start: 20201007

REACTIONS (2)
  - Angle closure glaucoma [Recovering/Resolving]
  - Liver disorder [Unknown]

NARRATIVE: CASE EVENT DATE: 20201001
